FAERS Safety Report 21339586 (Version 2)
Quarter: 2022Q4

REPORT INFORMATION
  Report Type: Report from Study
  Country: US (occurrence: US)
  Receive Date: 20220915
  Receipt Date: 20221004
  Transmission Date: 20230113
  Serious: No
  Sender: FDA-Public Use
  Company Number: US-SA-SAC20220909001355

PATIENT
  Sex: Female

DRUGS (6)
  1. TERIFLUNOMIDE [Suspect]
     Active Substance: TERIFLUNOMIDE
     Indication: Multiple sclerosis
     Dosage: 14 MG, QD
     Route: 048
     Dates: start: 20220404
  2. LOSARTAN [Concomitant]
     Active Substance: LOSARTAN
  3. FISH OIL [Concomitant]
     Active Substance: FISH OIL
  4. VITAMIN D NOS [Concomitant]
     Active Substance: VITAMIN D NOS
  5. HYDROCHLOROTHIAZIDE [Concomitant]
     Active Substance: HYDROCHLOROTHIAZIDE
  6. BIOMEGA [Concomitant]
     Active Substance: CAPSAICIN

REACTIONS (3)
  - Antinuclear antibody positive [Not Recovered/Not Resolved]
  - White blood cell count decreased [Not Recovered/Not Resolved]
  - Paraesthesia [Not Recovered/Not Resolved]

NARRATIVE: CASE EVENT DATE: 20220101
